FAERS Safety Report 20370044 (Version 1)
Quarter: 2022Q1

REPORT INFORMATION
  Report Type: Spontaneous
  Country: US (occurrence: US)
  Receive Date: 20220124
  Receipt Date: 20220124
  Transmission Date: 20220424
  Serious: Yes (Hospitalization, Other)
  Sender: FDA-Public Use
  Company Number: US-PFIZER INC-202200051150

PATIENT
  Age: 6 Year
  Sex: Male

DRUGS (2)
  1. METHYLPREDNISOLONE SODIUM SUCCINATE [Suspect]
     Active Substance: METHYLPREDNISOLONE SODIUM SUCCINATE
     Dosage: UNK
     Route: 042
  2. REMICADE [Concomitant]
     Active Substance: INFLIXIMAB
     Dosage: UNK
     Dates: start: 202104

REACTIONS (8)
  - Inflammatory bowel disease [Recovered/Resolved]
  - Infection [Unknown]
  - Pyrexia [Not Recovered/Not Resolved]
  - Rectal haemorrhage [Unknown]
  - Drug ineffective [Unknown]
  - Frequent bowel movements [Unknown]
  - Decreased appetite [Unknown]
  - Throat tightness [Unknown]
